FAERS Safety Report 6305201-3 (Version None)
Quarter: 2009Q3

REPORT INFORMATION
  Report Type: 
  Country: None (occurrence: None)
  Receive Date: 20090811
  Receipt Date: 20090731
  Transmission Date: 20100115
  Serious: Yes (Hospitalization)
  Sender: FDA-Public Use
  Company Number: US-SANOFI-SYNTHELABO-A03200903426

PATIENT
  Sex: Female

DRUGS (3)
  1. OXYCODONE [Concomitant]
     Indication: PAIN
     Dosage: UNK
     Route: 065
  2. OXYCONTIN [Concomitant]
     Indication: PAIN
     Dosage: UNK
     Route: 065
  3. AMBIEN CR [Suspect]
     Indication: SLEEP DISORDER
     Dosage: UNK
     Route: 048
     Dates: start: 20090701

REACTIONS (4)
  - DIZZINESS [None]
  - FALL [None]
  - FEELING ABNORMAL [None]
  - INJURY [None]
